FAERS Safety Report 15064623 (Version 1)
Quarter: 2018Q2

REPORT INFORMATION
  Report Type: Report from Study
  Country: US (occurrence: US)
  Receive Date: 20180625
  Receipt Date: 20180625
  Transmission Date: 20180711
  Serious: No
  Sender: FDA-Public Use
  Company Number: US-AMGEN-USASL2016072131

PATIENT
  Age: 75 Year

DRUGS (1)
  1. REPATHA [Suspect]
     Active Substance: EVOLOCUMAB
     Indication: HYPERLIPIDAEMIA
     Dosage: 140 MG, TWICE PER MONTH
     Route: 065

REACTIONS (3)
  - Feeling abnormal [Unknown]
  - Blood pressure decreased [Unknown]
  - Mobility decreased [Unknown]
